FAERS Safety Report 8103157-4 (Version None)
Quarter: 2011Q4

REPORT INFORMATION
  Report Type: 
  Country: None (occurrence: None)
  Receive Date: 20111222
  Receipt Date: 20110920
  Transmission Date: 20120403
  Serious: Yes (Hospitalization)
  Sender: FDA-Public Use
  Company Number: UTC-010380

PATIENT
  Age: 33 Year
  Sex: Male
  Weight: 68.18 kg

DRUGS (2)
  1. TYVASO [Suspect]
     Indication: PULMONARY ARTERIAL HYPERTENSION
     Dosage: 288  MCG (72 MCG, 4 IN 1 D), INHALATION
     Route: 055
     Dates: start: 20110524
  2. TRACLEER [Concomitant]

REACTIONS (3)
  - SCLERODERMA [None]
  - CONVULSION [None]
  - FATIGUE [None]
